FAERS Safety Report 23158937 (Version 8)
Quarter: 2024Q3

REPORT INFORMATION
  Report Type: Report from Study
  Country: CA (occurrence: CA)
  Receive Date: 20231108
  Receipt Date: 20240904
  Transmission Date: 20241016
  Serious: Yes (Death, Hospitalization, Other)
  Sender: EISAI
  Company Number: CA-Eisai-EC-2023-152101

PATIENT
  Age: 65 Year
  Sex: Female

DRUGS (2)
  1. LENVIMA [Suspect]
     Active Substance: LENVATINIB
     Indication: Endometrial cancer
     Route: 048
  2. PEMBROLIZUMAB [Suspect]
     Active Substance: PEMBROLIZUMAB
     Indication: Endometrial cancer
     Route: 042

REACTIONS (18)
  - Ascites [Fatal]
  - Fatigue [Fatal]
  - Inappropriate schedule of product administration [Fatal]
  - Malignant neoplasm progression [Fatal]
  - Blood creatinine increased [Fatal]
  - General physical health deterioration [Fatal]
  - Hypertension [Fatal]
  - Weight decreased [Fatal]
  - Death [Fatal]
  - Arthralgia [Fatal]
  - Diarrhoea [Fatal]
  - Myalgia [Fatal]
  - Pain [Fatal]
  - Pain in extremity [Fatal]
  - Periarthritis [Fatal]
  - Urinary tract infection [Fatal]
  - Vascular access complication [Fatal]
  - Nausea [Fatal]
